FAERS Safety Report 4887677-1 (Version None)
Quarter: 2006Q1

REPORT INFORMATION
  Report Type: 
  Country: None (occurrence: None)
  Receive Date: 20060119
  Receipt Date: 20060119
  Transmission Date: 20060701
  Serious: Yes (Hospitalization)
  Sender: FDA-Public Use
  Company Number: None

PATIENT
  Age: 31 Year
  Sex: Female
  Weight: 68.9 kg

DRUGS (7)
  1. HUMIRA [Suspect]
     Indication: CROHN'S DISEASE
     Dosage: 6 MG WEEKLY SUBCUT
     Route: 058
     Dates: start: 20050801, end: 20051101
  2. NORGESTIMATE AND ETHINYL ESTRADIOL [Concomitant]
  3. AVANDIA [Concomitant]
  4. GLUCOTROL [Concomitant]
  5. PREVACID [Concomitant]
  6. IRON [Concomitant]
  7. MULTI-VITAMIN [Concomitant]

REACTIONS (3)
  - INFLAMMATION [None]
  - MASS [None]
  - PULMONARY MASS [None]
